FAERS Safety Report 7885579 (Version 2)
Quarter: 2014Q2

REPORT INFORMATION
  Report Type: Report from Study
  Country: MX (occurrence: MX)
  Receive Date: 20110405
  Receipt Date: 20140410
  Transmission Date: 20141212
  Serious: Yes (Death, Other)
  Sender: FDA-Public Use
  Company Number: PHHY2011MX24732

PATIENT
  Age: 61 Year
  Sex: Female

DRUGS (3)
  1. CO-DIOVAN [Suspect]
     Indication: HYPERTENSION
     Dosage: 1DF (160MG VALS/12.5 MG HYDR), BID
     Route: 048
     Dates: start: 20060301
  2. CO-DIOVAN [Suspect]
     Dosage: 1 DF (320MG VALS /25 MG HYDR), DAILY
     Dates: start: 200903
  3. CO-DIOVAN [Suspect]
     Dosage: 2 DF (160/5/25MG) DAILY
     Route: 048
     Dates: start: 201103, end: 201104

REACTIONS (9)
  - Respiratory failure [Fatal]
  - Umbilical hernia [Not Recovered/Not Resolved]
  - Overweight [Unknown]
  - Abdominal pain upper [Recovered/Resolved]
  - Back pain [Recovered/Resolved]
  - Bronchitis [Unknown]
  - Arthritis [Unknown]
  - Cough [Unknown]
  - Drug intolerance [Unknown]
